FAERS Safety Report 8874851 (Version 1)
Quarter: 2012Q4

REPORT INFORMATION
  Report Type: 
  Country: US (occurrence: US)
  Receive Date: 20121023
  Receipt Date: 20121023
  Transmission Date: 20130627
  Serious: Yes (Other)
  Sender: FDA-Public Use
  Company Number: US-PFIZER INC-HQWYE326826SEP07

PATIENT
  Age: 63 Year
  Sex: Female
  Weight: 129 kg

DRUGS (9)
  1. PREMARIN [Suspect]
     Indication: HORMONE REPLACEMENT THERAPY
     Dosage: 0.625 mg, UNK
     Dates: start: 19920601, end: 19921110
  2. PREMARIN [Suspect]
     Dosage: 0.625 mg, UNK
     Dates: start: 19950516, end: 19950522
  3. PREMARIN [Suspect]
     Dosage: 0.625 mg, UNK
     Dates: start: 19951103, end: 19951103
  4. PREMARIN [Suspect]
     Dosage: 0.625 mg, UNK
     Dates: start: 20020212, end: 20040519
  5. PROVERA [Suspect]
     Indication: HORMONE REPLACEMENT THERAPY
     Dosage: UNK
     Dates: start: 19920601
  6. PREMARIN [Suspect]
     Indication: HORMONE REPLACEMENT THERAPY
     Dosage: UNK
     Dates: start: 19920601
  7. MEDROXYPROGESTERONE ACETATE [Suspect]
     Indication: HORMONE REPLACEMENT THERAPY
     Dosage: 2.5 mg, UNK
     Dates: start: 20020212, end: 20040526
  8. CYCRIN [Suspect]
     Indication: HORMONE REPLACEMENT THERAPY
     Dosage: UNK
  9. MEDROXYPROGESTERONE ACETATE [Suspect]
     Indication: HORMONE REPLACEMENT THERAPY
     Dosage: UNK
     Dates: start: 200312, end: 200404

REACTIONS (1)
  - Breast cancer female [Unknown]
